FAERS Safety Report 4566136-X (Version None)
Quarter: 2005Q1

REPORT INFORMATION
  Report Type: 
  Country: None (occurrence: None)
  Receive Date: 20050120
  Receipt Date: 20050120
  Transmission Date: 20050727
  Serious: Yes (Other)
  Sender: FDA-Public Use
  Company Number: None

PATIENT
  Sex: Male
  Weight: 66.2252 kg

DRUGS (2)
  1. DILANTIN [Suspect]
     Indication: DEVELOPMENTAL DELAY
     Dosage: 130 MG QAM 160 MG QPM PO
     Route: 048
  2. DILANTIN [Suspect]
     Indication: EPILEPSY
     Dosage: 130 MG QAM 160 MG QPM PO
     Route: 048

REACTIONS (3)
  - ANTICONVULSANT DRUG LEVEL DECREASED [None]
  - DRUG INTOLERANCE [None]
  - PHARMACEUTICAL PRODUCT COMPLAINT [None]
